FAERS Safety Report 8062670 (Version 3)
Quarter: 2015Q2

REPORT INFORMATION
  Report Type: Spontaneous
  Country: JP (occurrence: JP)
  Receive Date: 20110801
  Receipt Date: 20150625
  Transmission Date: 20150821
  Serious: Yes (Other)
  Sender: FDA-Public Use
  Company Number: JP-BAYER-2011-017460

PATIENT
  Age: 89 Year
  Sex: Male
  Weight: 45 kg

DRUGS (9)
  1. NEXAVAR [Suspect]
     Active Substance: SORAFENIB
     Indication: HEPATOCELLULAR CARCINOMA
     Dosage: 200 MG, QD
     Route: 048
     Dates: start: 20100630, end: 20101005
  2. NEXAVAR [Suspect]
     Active Substance: SORAFENIB
     Indication: HEPATOCELLULAR CARCINOMA
     Dosage: 200 MG, QD
     Route: 048
     Dates: start: 20101006, end: 20110302
  3. ALLELOCK [Concomitant]
     Active Substance: OLOPATADINE HYDROCHLORIDE
     Indication: PRURITUS
     Dosage: DAILY DOSE 10 MG
     Route: 048
     Dates: start: 20101006
  4. NEXAVAR [Suspect]
     Active Substance: SORAFENIB
     Indication: HEPATOCELLULAR CARCINOMA
     Dosage: 400 MG, QD
     Route: 048
     Dates: start: 20100217, end: 20100629
  5. FERROMIA [Concomitant]
     Active Substance: FERROUS CITRATE
     Indication: ANAEMIA
     Dosage: DAILY DOSE 50 MG
     Route: 048
  6. LIVACT [Concomitant]
     Active Substance: AMINO ACIDS
     Indication: HEPATIC CIRRHOSIS
     Dosage: DAILY DOSE 12.45 G
     Route: 048
  7. NEXAVAR [Suspect]
     Active Substance: SORAFENIB
     Indication: HEPATOCELLULAR CARCINOMA
     Dosage: 200 MG, QD
     Route: 048
     Dates: start: 20100209, end: 20100216
  8. SALAZOPYRIN [Concomitant]
     Active Substance: SULFASALAZINE
     Indication: COLITIS ULCERATIVE
     Dosage: DAILY DOSE 1500 G
     Route: 048
  9. BIOLACTIS [Concomitant]
     Active Substance: LACTOBACILLUS CASEI
     Indication: COLITIS ULCERATIVE
     Dosage: DAILY DOSE 3 G
     Route: 048

REACTIONS (7)
  - Platelet count decreased [None]
  - Diarrhoea [None]
  - Hypertension [Unknown]
  - Brain cancer metastatic [None]
  - Keratoacanthoma [Recovered/Resolved]
  - Hyperkeratosis [None]
  - Pruritus [Recovered/Resolved]

NARRATIVE: CASE EVENT DATE: 2010
